FAERS Safety Report 22214783 (Version 2)
Quarter: 2023Q2

REPORT INFORMATION
  Report Type: Spontaneous
  Country: US (occurrence: US)
  Receive Date: 20230415
  Receipt Date: 20230522
  Transmission Date: 20230722
  Serious: No
  Sender: FDA-Public Use
  Company Number: US-JNJFOC-20230418006

PATIENT
  Age: 66 Year
  Sex: Female

DRUGS (2)
  1. ZYRTEC [Suspect]
     Active Substance: CETIRIZINE HYDROCHLORIDE
     Indication: Pruritus
     Route: 065
     Dates: start: 20220101
  2. ZYRTEC [Suspect]
     Active Substance: CETIRIZINE HYDROCHLORIDE
     Indication: Rash pruritic

REACTIONS (3)
  - Rash pruritic [Not Recovered/Not Resolved]
  - Allergic reaction to excipient [Unknown]
  - Off label use [Unknown]

NARRATIVE: CASE EVENT DATE: 20220101
